FAERS Safety Report 21954903 (Version 1)
Quarter: 2023Q1

REPORT INFORMATION
  Report Type: Spontaneous
  Country: NP (occurrence: NP)
  Receive Date: 20230206
  Receipt Date: 20230206
  Transmission Date: 20230418
  Serious: Yes (Other)
  Sender: FDA-Public Use
  Company Number: NP-MLMSERVICE-20230125-4057816-1

PATIENT
  Age: 45 Year
  Sex: Female

DRUGS (2)
  1. HYDROXYCHLOROQUINE [Suspect]
     Active Substance: HYDROXYCHLOROQUINE
     Indication: Pain in extremity
  2. METHOTREXATE [Suspect]
     Active Substance: METHOTREXATE
     Indication: Pain in extremity

REACTIONS (1)
  - Mycobacterium marinum infection [Recovered/Resolved]
